FAERS Safety Report 9651804 (Version 1)
Quarter: 2013Q4

REPORT INFORMATION
  Report Type: Spontaneous
  Country: US (occurrence: US)
  Receive Date: 20131029
  Receipt Date: 20131029
  Transmission Date: 20140711
  Serious: No
  Sender: FDA-Public Use
  Company Number: US-ENDO PHARMACEUTICALS INC.-VALP20120011

PATIENT
  Sex: Male
  Weight: 90.8 kg

DRUGS (11)
  1. VALPROIC ACID [Suspect]
     Indication: BIPOLAR DISORDER
     Dosage: UNKNOWN
     Route: 048
     Dates: start: 201206
  2. VALPROIC ACID [Suspect]
     Dosage: UNKNOWN
     Route: 048
     Dates: start: 201206
  3. DEPAKOTE (TABLET) [Suspect]
     Indication: BIPOLAR DISORDER
     Route: 065
     Dates: start: 1995
  4. DEPAKOTE ER [Suspect]
     Dosage: UNKNOWN
     Route: 048
  5. DIVALPROEX SODIUM [Suspect]
     Indication: BIPOLAR DISORDER
     Dosage: UNKNOWN
  6. DEPAKENE [Suspect]
     Indication: BIPOLAR DISORDER
     Route: 065
     Dates: start: 1995
  7. DEPLIN [Concomitant]
     Indication: BIPOLAR DISORDER
     Dosage: UNKNOWN
  8. ZYPREXA [Concomitant]
     Indication: PRODUCT USED FOR UNKNOWN INDICATION
     Dosage: UNKNOWN
  9. ZOLOFT [Concomitant]
     Indication: PRODUCT USED FOR UNKNOWN INDICATION
     Dosage: UNKNOWN
  10. FERACON [Concomitant]
     Indication: PRODUCT USED FOR UNKNOWN INDICATION
     Dosage: UNKNOWN
  11. TYROSINT [Concomitant]
     Indication: PRODUCT USED FOR UNKNOWN INDICATION
     Dosage: UNKNOWN

REACTIONS (3)
  - Gastrectomy [Unknown]
  - Drug level below therapeutic [Not Recovered/Not Resolved]
  - Tremor [Not Recovered/Not Resolved]
